FAERS Safety Report 20430202 (Version 1)
Quarter: 2022Q1

REPORT INFORMATION
  Report Type: Report from Study
  Country: US (occurrence: US)
  Receive Date: 20220204
  Receipt Date: 20220204
  Transmission Date: 20220423
  Serious: Yes (Hospitalization)
  Sender: FDA-Public Use
  Company Number: US-SERVIER-S20001080

PATIENT

DRUGS (21)
  1. ONCASPAR [Suspect]
     Active Substance: PEGASPARGASE
     Indication: Acute lymphocytic leukaemia
     Dosage: 1250 IU/M2
     Route: 042
     Dates: start: 20191220, end: 20201220
  2. ONCASPAR [Suspect]
     Active Substance: PEGASPARGASE
     Dosage: 1250 IU/M2
     Route: 042
     Dates: start: 20200103
  3. VENETOCLAX [Suspect]
     Active Substance: VENETOCLAX
     Indication: Acute lymphocytic leukaemia
     Dosage: 70 MG, QD
     Route: 048
     Dates: start: 20191220, end: 20191220
  4. VENETOCLAX [Suspect]
     Active Substance: VENETOCLAX
     Dosage: 170 MG, QD
     Route: 048
     Dates: start: 20191221, end: 20200129
  5. NAVITOCLAX [Suspect]
     Active Substance: NAVITOCLAX
     Indication: Acute lymphocytic leukaemia
     Dosage: 25 MG, QD
     Route: 048
     Dates: start: 20191222, end: 20200129
  6. DEXAMETHASONE [Suspect]
     Active Substance: DEXAMETHASONE
     Indication: Acute lymphocytic leukaemia
     Dosage: 20 MG/M2, QD
     Route: 048
     Dates: start: 20191220
  7. VINCRISTINE [Suspect]
     Active Substance: VINCRISTINE
     Indication: Acute lymphocytic leukaemia
     Dosage: 1.5 MG/M2, 1X/WEEK
     Route: 042
     Dates: start: 20191220, end: 20200128
  8. TN UNSPECIFIED [Concomitant]
     Indication: Cardiomyopathy
     Dosage: UNK
     Route: 048
  9. TN UNSPECIFIED [Concomitant]
     Indication: Cardiomyopathy
     Dosage: UNK
     Route: 048
  10. TN UNSPECIFIED [Concomitant]
     Indication: Weight decreased
     Dosage: 2 MG, BID
     Route: 048
     Dates: start: 20191120
  11. TN UNSPECIFIED [Concomitant]
     Indication: Prophylaxis
     Dosage: 10 MG, BID
     Route: 048
     Dates: start: 20191120
  12. TN UNSPECIFIED [Concomitant]
     Indication: Polyneuropathy
     Dosage: 125 MG, BID
     Route: 048
     Dates: start: 20191120
  13. TN UNSPECIFIED [Concomitant]
     Indication: Seizure
     Dosage: 400 MG, BID
     Route: 048
     Dates: start: 20191120
  14. TN UNSPECIFIED [Concomitant]
     Indication: Nausea
     Dosage: 2 ML, PRN
     Route: 042
     Dates: start: 20191217
  15. TN UNSPECIFIED [Concomitant]
     Indication: Prophylaxis
     Dosage: 250 MG, QD
     Route: 048
     Dates: start: 20191219
  16. TN UNSPECIFIED [Concomitant]
     Indication: Prophylaxis
     Dosage: 26 MG, QD
     Route: 042
     Dates: start: 20191219
  17. TN UNSPECIFIED [Concomitant]
     Indication: Device physical property issue
     Dosage: 30 IU, PRN
     Route: 042
     Dates: start: 20191217
  18. TN UNSPECIFIED [Concomitant]
     Indication: Polyneuropathy
     Dosage: 1.5 MG, PRN
     Route: 042
     Dates: start: 20200103
  19. TN UNSPECIFIED [Concomitant]
     Indication: Blood bilirubin increased
     Dosage: 250 MG, TID
     Route: 048
     Dates: start: 20200108
  20. TN UNSPECIFIED [Concomitant]
     Indication: Tumour lysis syndrome
     Dosage: 300 MG
     Route: 048
  21. BACTRIM [Concomitant]
     Active Substance: SULFAMETHOXAZOLE\TRIMETHOPRIM
     Indication: Infection prophylaxis
     Dosage: 2 DF, QD
     Route: 048
     Dates: start: 20191120

REACTIONS (1)
  - Sepsis [Not Recovered/Not Resolved]

NARRATIVE: CASE EVENT DATE: 20200130
